FAERS Safety Report 9034973 (Version 1)
Quarter: 2013Q1

REPORT INFORMATION
  Report Type: Report from Study
  Country: US (occurrence: US)
  Receive Date: 20130129
  Receipt Date: 20130129
  Transmission Date: 20140127
  Serious: No
  Sender: FDA-Public Use
  Company Number: US-ABBOTT-12P-163-0890656-00

PATIENT
  Age: 67 Year
  Sex: Female

DRUGS (17)
  1. HUMIRA 40 MG/0.8 ML PEN [Suspect]
     Indication: CROHN^S DISEASE
     Dates: start: 20110919
  2. PRAVACHOL [Suspect]
     Indication: PRODUCT USED FOR UNKNOWN INDICATION
     Dates: end: 20120106
  3. B12 [Concomitant]
     Indication: PRODUCT USED FOR UNKNOWN INDICATION
  4. CAPOTEN [Concomitant]
     Indication: CARDIOMYOPATHY
  5. COREG [Concomitant]
     Indication: CARDIOMYOPATHY
     Dosage: 12/5 MG TWICE A DAY
  6. ESTROGEN [Concomitant]
     Indication: OESTROGEN REPLACEMENT THERAPY
     Dosage: .5 PATCH, CHANGES WEEKLY
  7. FOLIC ACID [Concomitant]
     Indication: SUPPLEMENTATION THERAPY
  8. LASIX [Concomitant]
     Indication: CARDIOMYOPATHY
  9. LANSOPRAZOLE [Concomitant]
     Indication: DYSPEPSIA
  10. LORAZEPAM [Concomitant]
     Indication: NERVOUSNESS
  11. MORPHINE SULFATE [Concomitant]
     Indication: ARTHRALGIA
  12. MIRALAX [Concomitant]
     Indication: CROHN^S DISEASE
  13. SPIRONOLACTONE [Concomitant]
     Indication: CARDIOMYOPATHY
  14. VENLAFAXINE HYDROCHLORIDE [Concomitant]
     Indication: DEPRESSION
  15. VICODIN [Concomitant]
     Indication: PAIN
     Dosage: 2 PILLS EVERY 4 HOURS
  16. XANAX [Concomitant]
     Indication: PALPITATIONS
  17. AMBIEN [Concomitant]
     Indication: INSOMNIA

REACTIONS (1)
  - Pain [Not Recovered/Not Resolved]
